FAERS Safety Report 4843755-4 (Version None)
Quarter: 2005Q4

REPORT INFORMATION
  Report Type: 
  Country: None (occurrence: None)
  Receive Date: 20051129
  Receipt Date: 20051118
  Transmission Date: 20060501
  Serious: Yes (Other)
  Sender: FDA-Public Use
  Company Number: 200513987GDS

PATIENT
  Sex: Male

DRUGS (3)
  1. CIPRO              (CIPROFLOXICAN HYDROCHLORIDE) [Suspect]
  2. CLOZARIL [Suspect]
     Dosage: 400 MG, TOTAL DAILY, ORAL
     Route: 048
  3. LEVAQUIN [Suspect]

REACTIONS (2)
  - DRUG LEVEL INCREASED [None]
  - TREMOR [None]
